FAERS Safety Report 9692903 (Version 2)
Quarter: 2014Q2

REPORT INFORMATION
  Report Type: Report from Study
  Country: JP (occurrence: JP)
  Receive Date: 20131118
  Receipt Date: 20140630
  Transmission Date: 20141212
  Serious: Yes (Death)
  Sender: FDA-Public Use
  Company Number: JP-ROCHE-1301386

PATIENT
  Sex: Female

DRUGS (7)
  1. METHOXY POLYETHYLENE GLYCOL-EPOETIN BETA [Suspect]
     Indication: NEPHROGENIC ANAEMIA
     Route: 058
     Dates: start: 20121001, end: 20121001
  2. FRANDOL S [Concomitant]
     Route: 062
     Dates: end: 20121226
  3. AMLODIN [Concomitant]
     Route: 048
     Dates: end: 20121226
  4. TAKEPRON [Concomitant]
     Route: 048
     Dates: end: 20121226
  5. APLACE [Concomitant]
     Route: 048
     Dates: end: 20121226
  6. LACTULOSE [Concomitant]
     Route: 048
     Dates: end: 20121211
  7. KREMEZIN [Concomitant]
     Indication: GLOMERULONEPHRITIS CHRONIC
     Route: 048
     Dates: end: 20121211

REACTIONS (1)
  - Ureteric cancer [Fatal]
